FAERS Safety Report 17675785 (Version 1)
Quarter: 2020Q2

REPORT INFORMATION
  Report Type: Spontaneous
  Country: US (occurrence: US)
  Receive Date: 20200415
  Receipt Date: 20200415
  Transmission Date: 20200714
  Serious: Yes (Hospitalization)
  Sender: FDA-Public Use
  Company Number: None

PATIENT
  Age: 80 Year
  Sex: Male

DRUGS (2)
  1. CEFAZOLIN (CEFAZOLIN NA 10GM/VIL INJ) [Suspect]
     Active Substance: CEFAZOLIN SODIUM
     Indication: STAPHYLOCOCCAL BACTERAEMIA
     Route: 042
     Dates: start: 20191007, end: 20191104
  2. CEFAZOLIN (CEFAZOLIN NA 10GM/VIL INJ) [Suspect]
     Active Substance: CEFAZOLIN SODIUM
     Indication: OSTEOMYELITIS
     Route: 042
     Dates: start: 20191007, end: 20191104

REACTIONS (3)
  - Neutropenia [None]
  - Leukopenia [None]
  - Pyrexia [None]

NARRATIVE: CASE EVENT DATE: 20191104
